FAERS Safety Report 7157108-X (Version None)
Quarter: 2010Q4

REPORT INFORMATION
  Report Type: 
  Country: None (occurrence: None)
  Receive Date: 20101214
  Receipt Date: 20100108
  Transmission Date: 20110411
  Serious: No
  Sender: FDA-Public Use
  Company Number: US-ASTRAZENECA-2010SE00953

PATIENT
  Age: 81 Year
  Sex: Female
  Weight: 49.9 kg

DRUGS (2)
  1. CRESTOR [Suspect]
     Route: 048
     Dates: start: 20090101
  2. LEVOTHROID [Concomitant]

REACTIONS (2)
  - ALOPECIA [None]
  - MUSCULAR WEAKNESS [None]
